FAERS Safety Report 9015830 (Version 1)
Quarter: 2012Q4

REPORT INFORMATION
  Report Type: Spontaneous
  Country: US (occurrence: None)
  Receive Date: 20121231
  Receipt Date: 20121231
  Transmission Date: 20130627
  Serious: Yes (Hospitalization, Other)
  Sender: FDA-Public Use
  Company Number: JPI-P-027933

PATIENT
  Age: 52 Year
  Sex: Male

DRUGS (2)
  1. XYREM (500 MILLIGRAM/MILLILITERS, SOLUTION) (SODIUM OXYBATE) [Suspect]
     Indication: REM SLEEP ABNORMAL
     Route: 048
     Dates: start: 201108
  2. XYREM (500 MILLIGRAM/MILLILITERS, SOLUTION) (SODIUM OXYBATE) [Suspect]
     Indication: REM SLEEP ABNORMAL
     Dosage: 4.25 gm first dose/3.75 (qm second dose), oral
     Route: 048

REACTIONS (14)
  - Balance disorder [None]
  - Fall [None]
  - Limb injury [None]
  - Pneumonia [None]
  - Rib fracture [None]
  - Pain [None]
  - Weight decreased [None]
  - Spinal fracture [None]
  - Clavicle fracture [None]
  - Chills [None]
  - Crying [None]
  - Mood altered [None]
  - Decreased appetite [None]
  - Victim of spousal abuse [None]
